FAERS Safety Report 8954788 (Version 1)
Quarter: 2012Q4

REPORT INFORMATION
  Report Type: Spontaneous
  Country: US (occurrence: None)
  Receive Date: 20121204
  Receipt Date: 20121204
  Transmission Date: 20130627
  Serious: No
  Sender: FDA-Public Use
  Company Number: None

PATIENT
  Sex: Male
  Weight: 141.98 kg

DRUGS (1)
  1. ZYPREXA [Suspect]
     Dates: start: 201010

REACTIONS (1)
  - Unevaluable event [None]
